FAERS Safety Report 7416937-5 (Version None)
Quarter: 2011Q2

REPORT INFORMATION
  Report Type: 
  Country: None (occurrence: None)
  Receive Date: 20110415
  Receipt Date: 20110331
  Transmission Date: 20111010
  Serious: Yes (Hospitalization)
  Sender: FDA-Public Use
  Company Number: US-CELGENEUS-163-21880-11040213

PATIENT
  Sex: Male
  Weight: 79.45 kg

DRUGS (4)
  1. REVLIMID [Suspect]
     Indication: MULTIPLE MYELOMA
     Dosage: 25 MILLIGRAM
     Route: 048
     Dates: start: 20090715, end: 20110331
  2. COUMADIN [Concomitant]
     Route: 065
  3. VENTOLIN [Concomitant]
     Route: 065
  4. LASIX [Concomitant]
     Route: 065

REACTIONS (2)
  - RENAL FAILURE [None]
  - URINARY RETENTION [None]
